FAERS Safety Report 22399627 (Version 1)
Quarter: 2023Q2

REPORT INFORMATION
  Report Type: Spontaneous
  Country: KR (occurrence: KR)
  Receive Date: 20230602
  Receipt Date: 20230602
  Transmission Date: 20230722
  Serious: Yes (Hospitalization)
  Sender: FDA-Public Use
  Company Number: KR-ORGANON-O2306KOR000193

PATIENT
  Age: 61 Year
  Sex: Female
  Weight: 66 kg

DRUGS (1)
  1. HYDROCHLOROTHIAZIDE\LOSARTAN POTASSIUM [Suspect]
     Active Substance: HYDROCHLOROTHIAZIDE\LOSARTAN POTASSIUM
     Indication: Essential hypertension
     Dosage: UNK, QD (TABLETS, UNCLASSIFIED)
     Route: 048
     Dates: start: 20180712

REACTIONS (1)
  - Wolff-Parkinson-White syndrome [Recovered/Resolved]

NARRATIVE: CASE EVENT DATE: 20190129
